FAERS Safety Report 19118264 (Version 3)
Quarter: 2021Q2

REPORT INFORMATION
  Report Type: Report from Study
  Country: US (occurrence: US)
  Receive Date: 20210409
  Receipt Date: 20210625
  Transmission Date: 20210717
  Serious: Yes (Hospitalization)
  Sender: FDA-Public Use
  Company Number: NVSC2021US074943

PATIENT
  Sex: Female
  Weight: 102.5 kg

DRUGS (4)
  1. TREPROSTINIL. [Suspect]
     Active Substance: TREPROSTINIL
     Dosage: UNK, CONT (15 NG/KG/ MIN)
     Route: 042
     Dates: start: 20210326
  2. TADALAFIL. [Suspect]
     Active Substance: TADALAFIL
     Indication: PRODUCT USED FOR UNKNOWN INDICATION
     Dosage: UNK
     Route: 065
  3. TREPROSTINIL. [Suspect]
     Active Substance: TREPROSTINIL
     Dosage: 7.5 NG/KG/MIN, CONT
     Route: 042
     Dates: start: 20210326
  4. TREPROSTINIL. [Suspect]
     Active Substance: TREPROSTINIL
     Indication: PULMONARY ARTERIAL HYPERTENSION
     Dosage: UNK (5 NKG/MIN), CONTINUOUS
     Route: 042
     Dates: start: 20210326

REACTIONS (5)
  - Thrombosis [Unknown]
  - Visual impairment [Unknown]
  - Illness [Unknown]
  - Dyspnoea [Unknown]
  - Fatigue [Unknown]
